FAERS Safety Report 10417870 (Version 1)
Quarter: 2014Q3

REPORT INFORMATION
  Report Type: Spontaneous
  Country: US (occurrence: US)
  Receive Date: 20140829
  Receipt Date: 20140829
  Transmission Date: 20150326
  Serious: Yes (Other)
  Sender: FDA-Public Use
  Company Number: US-AMGEN INC.-USASP2014064879

PATIENT
  Age: 5 Year
  Sex: Female
  Weight: 16.32 kg

DRUGS (9)
  1. ENBREL [Suspect]
     Active Substance: ETANERCEPT
     Indication: PRODUCT USED FOR UNKNOWN INDICATION
     Dosage: 15 MG, QWK
     Route: 058
     Dates: start: 20140725
  2. PEDIASURE                          /07459601/ [Concomitant]
     Dosage: UNK
  3. CYPROHEPTADIN [Concomitant]
     Dosage: 2 MG/5 ML, UNK
  4. TYLENOL [Concomitant]
     Active Substance: ACETAMINOPHEN
     Dosage: 650 MG, UNK, 8 HOURS
  5. MIRALAX                            /06344701/ [Concomitant]
     Dosage: UNK
  6. METHOTREXATE [Concomitant]
     Active Substance: METHOTREXATE
     Dosage: 2.5 MG, UNK
  7. SINEMET [Concomitant]
     Active Substance: CARBIDOPA\LEVODOPA
     Dosage: 10/100
  8. IRON [Concomitant]
     Active Substance: IRON
     Dosage: UNK
  9. BACLOFEN. [Concomitant]
     Active Substance: BACLOFEN
     Dosage: 20 MG, UNK

REACTIONS (2)
  - Coeliac disease [Unknown]
  - Joint swelling [Unknown]

NARRATIVE: CASE EVENT DATE: 201408
